FAERS Safety Report 25288840 (Version 1)
Quarter: 2025Q2

REPORT INFORMATION
  Report Type: Spontaneous
  Country: US (occurrence: None)
  Receive Date: 20250508
  Receipt Date: 20250508
  Transmission Date: 20250717
  Serious: Yes (Hospitalization, Disabling)
  Sender: FDA-CTU
  Company Number: None

PATIENT
  Age: 73 Year
  Sex: Female
  Weight: 48.08 kg

DRUGS (17)
  1. HUMIRA [Suspect]
     Active Substance: ADALIMUMAB
  2. TREMFYA [Concomitant]
     Active Substance: GUSELKUMAB
  3. REPATHA [Concomitant]
     Active Substance: EVOLOCUMAB
  4. AMLODIPINE [Concomitant]
     Active Substance: AMLODIPINE BESYLATE
  5. ALPRAZOLAM [Concomitant]
     Active Substance: ALPRAZOLAM
  6. GABAPENTIN [Concomitant]
     Active Substance: GABAPENTIN
  7. PANTOPRAZOLE [Concomitant]
     Active Substance: PANTOPRAZOLE
  8. CEVIMELINE [Concomitant]
     Active Substance: CEVIMELINE
  9. ALBUTEROL [Concomitant]
     Active Substance: ALBUTEROL
  10. denosumab injection [Concomitant]
  11. VITAMINS [Concomitant]
     Active Substance: VITAMINS
  12. PROBIOTICS NOS [Concomitant]
     Active Substance: PROBIOTICS NOS
  13. VITAMIN D3 [Concomitant]
     Active Substance: CHOLECALCIFEROL
  14. calcium magnesium/zinc [Concomitant]
  15. FLAXSEED [Concomitant]
     Active Substance: FLAX SEED
  16. COENZYME Q10 [Concomitant]
     Active Substance: DIETARY SUPPLEMENT\UBIDECARENONE
  17. ACETAMINOPHEN [Concomitant]
     Active Substance: ACETAMINOPHEN

REACTIONS (11)
  - Migraine [None]
  - Herpes zoster [None]
  - Trigeminal nerve disorder [None]
  - Neurotrophic keratopathy [None]
  - Psoriasis [None]
  - Alopecia [None]
  - Skin burning sensation [None]
  - Pain of skin [None]
  - Fatigue [None]
  - Depression [None]
  - Impaired work ability [None]

NARRATIVE: CASE EVENT DATE: 20240129
